FAERS Safety Report 10227308 (Version 1)
Quarter: 2014Q2

REPORT INFORMATION
  Report Type: Spontaneous
  Country: ZA (occurrence: ZA)
  Receive Date: 20140610
  Receipt Date: 20140610
  Transmission Date: 20141212
  Serious: Yes (Other)
  Sender: FDA-Public Use
  Company Number: ZA-ELI_LILLY_AND_COMPANY-ZA201406002636

PATIENT
  Sex: Female

DRUGS (3)
  1. HUMALOG 50% LISPRO, 50% NPL [Suspect]
     Indication: PRODUCT USED FOR UNKNOWN INDICATION
     Dosage: 60 U, BID
     Route: 065
     Dates: start: 201401
  2. HUMALOG 50% LISPRO, 50% NPL [Suspect]
     Dosage: 18 U, PRN
     Route: 065
     Dates: start: 201401
  3. HUMULIN NPH [Suspect]
     Indication: PRODUCT USED FOR UNKNOWN INDICATION
     Dosage: 28 U, EACH EVENING
     Route: 065
     Dates: start: 20140526

REACTIONS (5)
  - Anaemia vitamin B12 deficiency [Unknown]
  - Blood glucose increased [Unknown]
  - Hypoglycaemia [Unknown]
  - Drug dose omission [Unknown]
  - Loss of consciousness [Unknown]
